FAERS Safety Report 17684297 (Version 2)
Quarter: 2020Q2

REPORT INFORMATION
  Report Type: Spontaneous
  Country: CN (occurrence: CN)
  Receive Date: 20200420
  Receipt Date: 20200424
  Transmission Date: 20200714
  Serious: Yes (Other)
  Sender: FDA-Public Use
  Company Number: CN-ROCHE-2583745

PATIENT
  Age: 78 Year
  Sex: Male

DRUGS (20)
  1. RITUXIMAB. [Suspect]
     Active Substance: RITUXIMAB
     Indication: B-CELL LYMPHOMA
     Route: 065
     Dates: start: 20191029
  2. CASPOFUNGIN [Concomitant]
     Active Substance: CASPOFUNGIN
     Dosage: FIRST DAY 70MG, THEN 50MG ONCE PER DAY
     Route: 041
     Dates: start: 20191203
  3. CEFOPERAZONE SODIUM [Concomitant]
     Active Substance: CEFOPERAZONE SODIUM
     Route: 065
     Dates: start: 20191208
  4. DOXORUBICIN HYDROCHLORIDE. [Concomitant]
     Active Substance: DOXORUBICIN HYDROCHLORIDE
     Indication: B-CELL LYMPHOMA
     Route: 065
     Dates: start: 20191117
  5. IRINOTECAN [Concomitant]
     Active Substance: IRINOTECAN
     Indication: B-CELL LYMPHOMA
     Route: 065
     Dates: start: 20191029
  6. DEXAMETHASONE. [Concomitant]
     Active Substance: DEXAMETHASONE
     Indication: B-CELL LYMPHOMA
     Route: 065
     Dates: start: 20191029
  7. VORICONAZOLE. [Concomitant]
     Active Substance: VORICONAZOLE
     Route: 048
     Dates: start: 20191203, end: 20191207
  8. FLUCONAZOLE. [Concomitant]
     Active Substance: FLUCONAZOLE
     Indication: B-CELL LYMPHOMA
     Route: 065
     Dates: start: 20200120
  9. CYCLOPHOSPHAMIDE. [Concomitant]
     Active Substance: CYCLOPHOSPHAMIDE
     Route: 065
     Dates: start: 20191117
  10. PIPERACILLIN AND TAZOBACTAM [Concomitant]
     Active Substance: PIPERACILLIN SODIUM\TAZOBACTAM SODIUM
     Route: 065
     Dates: start: 20191215, end: 20200102
  11. LENALIDOMIDE [Concomitant]
     Active Substance: LENALIDOMIDE
     Indication: B-CELL LYMPHOMA
     Route: 065
     Dates: start: 20200115
  12. MOXIFLOXACIN HYDROCHLORIDE. [Concomitant]
     Active Substance: MOXIFLOXACIN HYDROCHLORIDE
     Route: 065
     Dates: start: 20191130, end: 20191207
  13. SULFAMETHOXAZOLE [Concomitant]
     Active Substance: SULFAMETHOXAZOLE
     Route: 065
     Dates: start: 20191215, end: 20200102
  14. CEFTAZIDIME. [Concomitant]
     Active Substance: CEFTAZIDIME
     Route: 065
     Dates: start: 20200122
  15. CEFTRIAXONE. [Suspect]
     Active Substance: CEFTRIAXONE
     Indication: PRODUCT USED FOR UNKNOWN INDICATION
     Route: 065
     Dates: start: 2019
  16. CYCLOPHOSPHAMIDE. [Concomitant]
     Active Substance: CYCLOPHOSPHAMIDE
     Indication: B-CELL LYMPHOMA
     Route: 065
     Dates: start: 20191029
  17. LINEZOLID. [Concomitant]
     Active Substance: LINEZOLID
     Route: 065
     Dates: start: 20191210
  18. CASPOFUNGIN [Concomitant]
     Active Substance: CASPOFUNGIN
     Route: 065
     Dates: start: 20191215, end: 20191223
  19. BIAPENEM [Concomitant]
     Active Substance: BIAPENEM
     Route: 065
     Dates: start: 20191210
  20. TINIDAZOLE. [Concomitant]
     Active Substance: TINIDAZOLE
     Route: 065
     Dates: start: 20200122

REACTIONS (9)
  - Pericardial effusion [Unknown]
  - Pneumonia [Unknown]
  - Delirium [Unknown]
  - Halo vision [Unknown]
  - Appendicitis [Unknown]
  - Atelectasis [Unknown]
  - Mental disorder [Unknown]
  - Proteinuria [Unknown]
  - Nausea [Unknown]

NARRATIVE: CASE EVENT DATE: 20191207
